FAERS Safety Report 4817893-6 (Version None)
Quarter: 2005Q3

REPORT INFORMATION
  Report Type: 
  Country: None (occurrence: None)
  Receive Date: 20050929
  Receipt Date: 20050624
  Transmission Date: 20060218
  Serious: No
  Sender: FDA-Public Use
  Company Number: 05P-163-0304056-00

PATIENT
  Age: 73 Year
  Sex: Female
  Weight: 54.4316 kg

DRUGS (15)
  1. HUMIRA [Suspect]
     Indication: RHEUMATOID ARTHRITIS
     Dosage: 40 MG, 1 IN 2 WK, SUBCUTANEOUS
     Route: 058
     Dates: start: 20050301
  2. METHOTREXATE [Concomitant]
  3. ARTHROTEC [Concomitant]
  4. HYDROXYCHLOROQUINE PHOSPHATE [Concomitant]
  5. OMEPRAZOLE [Concomitant]
  6. ATENOLOL [Concomitant]
  7. FOLIC ACID [Concomitant]
  8. ASCORBIC ACID [Concomitant]
  9. DIPHENHYDRAMINE HCL [Concomitant]
  10. ZOLPIDEM TARTRATE [Concomitant]
  11. CARISOPRODOL [Concomitant]
  12. ATORVASTATIN CALCIUM [Concomitant]
  13. PROPACET 100 [Concomitant]
  14. PROVELLA-14 [Concomitant]
  15. ASPIRIN [Concomitant]

REACTIONS (2)
  - DRY EYE [None]
  - SHOULDER PAIN [None]
